FAERS Safety Report 10062325 (Version 1)
Quarter: 2014Q2

REPORT INFORMATION
  Report Type: Spontaneous
  Country: US (occurrence: US)
  Receive Date: 20140407
  Receipt Date: 20140407
  Transmission Date: 20141212
  Serious: No
  Sender: FDA-Public Use
  Company Number: US-GLAXOSMITHKLINE-A1060295A

PATIENT
  Sex: Female

DRUGS (1)
  1. BENLYSTA [Suspect]
     Indication: SYSTEMIC LUPUS ERYTHEMATOSUS
     Route: 042
     Dates: start: 20140206, end: 20140206

REACTIONS (5)
  - Hypersensitivity [Unknown]
  - Face oedema [Unknown]
  - Lip swelling [Unknown]
  - Mouth swelling [Unknown]
  - Pruritus generalised [Unknown]
